FAERS Safety Report 6188699-3 (Version None)
Quarter: 2009Q2

REPORT INFORMATION
  Report Type: 
  Country: None (occurrence: None)
  Receive Date: 20090513
  Receipt Date: 20090504
  Transmission Date: 20091009
  Serious: Yes (Hospitalization)
  Sender: FDA-Public Use
  Company Number: AR-GILEAD-2009-0021279

PATIENT
  Sex: Male
  Weight: 59.5 kg

DRUGS (9)
  1. TRUVADA [Suspect]
     Indication: HIV INFECTION
     Route: 048
     Dates: start: 20090217
  2. TRUVADA [Suspect]
     Route: 048
     Dates: start: 20081222, end: 20090205
  3. TMC 278 [Suspect]
     Indication: HIV INFECTION
     Route: 048
     Dates: start: 20090217
  4. TMC 278 [Suspect]
     Dates: start: 20081222, end: 20090205
  5. DICLOFENAC [Concomitant]
     Indication: TENDONITIS
     Route: 048
  6. LORATADINE [Concomitant]
     Indication: SINUSITIS
  7. MULTI-VITAMINS [Concomitant]
     Indication: MEDICAL DIET
  8. CEFALEXIN [Concomitant]
     Indication: ANAL ABSCESS
     Dates: start: 20090115
  9. ACETYLSALICYLIC ACID [Concomitant]
     Indication: GUILLAIN-BARRE SYNDROME
     Dates: start: 20090130

REACTIONS (1)
  - MILLER FISHER SYNDROME [None]
